FAERS Safety Report 10908672 (Version 1)
Quarter: 2015Q1

REPORT INFORMATION
  Report Type: Spontaneous
  Country: CA (occurrence: None)
  Receive Date: 20150309
  Receipt Date: 20150309
  Transmission Date: 20150721
  Serious: Yes (Other)
  Sender: FDA-Public Use
  Company Number: INT_00704_2015

PATIENT
  Age: 13 Year
  Sex: Male

DRUGS (4)
  1. VINCRISTINE (VINCRISTINE) [Suspect]
     Active Substance: VINCRISTINE
     Indication: MEDULLOBLASTOMA
  2. CYCLOPHOSPHAMIDE (CYCLOPHOSPHAMIDE) [Suspect]
     Active Substance: CYCLOPHOSPHAMIDE
     Indication: MEDULLOBLASTOMA
     Dosage: DF
  3. CISPLATIN. [Suspect]
     Active Substance: CISPLATIN
     Indication: MEDULLOBLASTOMA
     Dosage: DF?OVER 6 HOURS , FOR A TOTAL OF SIX CYCLES
  4. RADIOTHERAPY [Suspect]
     Active Substance: RADIATION THERAPY
     Indication: MEDULLOBLASTOMA
     Dosage: 13 SESSIONS OF 1.8 GY EACH, FOLLOWED BY A BOOST TO THE POSTERIOR FOSSA OF 30.6 GY

REACTIONS (3)
  - Deafness [None]
  - Ototoxicity [None]
  - Tinnitus [None]
